FAERS Safety Report 9306781 (Version 3)
Quarter: 2013Q3

REPORT INFORMATION
  Report Type: Spontaneous
  Country: US (occurrence: None)
  Receive Date: 20130314
  Receipt Date: 20130702
  Transmission Date: 20140515
  Serious: Yes (Other)
  Sender: FDA-Public Use
  Company Number: JPI-P-021572

PATIENT
  Age: 44 Year
  Sex: Male
  Weight: 88.45 kg

DRUGS (6)
  1. XYREM (500 MILLIGRAM/MILLILITERS, SOLUTION) (SODIUM OXYBATE) [Suspect]
     Indication: CATAPLEXY
     Dosage: 4.5 GM (2.25 GM, 2 IN 1 D), ORAL
     Route: 048
     Dates: start: 20120504, end: 2012
  2. GABAPENTIN [Concomitant]
  3. NEXIUM I.V. [Concomitant]
  4. NUVIGIL (ARMODAFINIL) [Concomitant]
  5. MOTRIN (IBUPROFEN) [Concomitant]
  6. VICODIN (HYDROCODONE BITARTRATE AND ACETAMINOPHEN) [Concomitant]

REACTIONS (11)
  - Intervertebral disc protrusion [None]
  - Condition aggravated [None]
  - Neck pain [None]
  - Back pain [None]
  - Dysuria [None]
  - Nasopharyngitis [None]
  - Cataplexy [None]
  - Chest pain [None]
  - Low density lipoprotein increased [None]
  - Blood pressure increased [None]
  - Infrequent bowel movements [None]
